FAERS Safety Report 23247184 (Version 1)
Quarter: 2023Q4

REPORT INFORMATION
  Report Type: Spontaneous
  Country: DE (occurrence: DE)
  Receive Date: 20231130
  Receipt Date: 20231130
  Transmission Date: 20240110
  Serious: Yes (Other)
  Sender: FDA-Public Use
  Company Number: DE-EMBRYOTOX-202206395

PATIENT
  Sex: Female
  Weight: 70 kg

DRUGS (1)
  1. LEVETIRACETAM [Suspect]
     Active Substance: LEVETIRACETAM
     Indication: Seizure
     Dosage: 2000[MG/D]/2ND SEIZURES WITHIN 3 YRS
     Route: 048
     Dates: start: 20220318, end: 20220605

REACTIONS (3)
  - Abortion spontaneous [Recovered/Resolved]
  - Foetal growth restriction [Unknown]
  - Exposure during pregnancy [Recovered/Resolved]
